FAERS Safety Report 8331853-2 (Version None)
Quarter: 2012Q2

REPORT INFORMATION
  Report Type: 
  Country: None (occurrence: None)
  Receive Date: 20120502
  Receipt Date: 20120409
  Transmission Date: 20120825
  Serious: No
  Sender: FDA-Public Use
  Company Number: US-AMGEN-USASP2011027624

PATIENT
  Age: 25 Year
  Sex: Female

DRUGS (10)
  1. ENBREL [Suspect]
     Indication: PSORIATIC ARTHROPATHY
  2. JUNEL 1.5/30 [Concomitant]
  3. SULINDAC [Concomitant]
  4. FISH OIL [Concomitant]
  5. YEAST-GARD                         /01411901/ [Concomitant]
  6. ENBREL [Suspect]
     Indication: RHEUMATOID ARTHRITIS
  7. METHOTREXATE [Concomitant]
     Dosage: UNK UNK, QD
  8. ENBREL [Suspect]
     Indication: PSORIASIS
     Dosage: 50 MG, QWK
     Dates: start: 20110401
  9. GLUCOSAMINE CHONDROITIN [Concomitant]
  10. FOLIC ACID [Concomitant]

REACTIONS (3)
  - INJECTION SITE REACTION [None]
  - INJECTION SITE ERYTHEMA [None]
  - INJECTION SITE URTICARIA [None]
